FAERS Safety Report 8281735-X (Version None)
Quarter: 2012Q2

REPORT INFORMATION
  Report Type: 
  Country: None (occurrence: None)
  Receive Date: 20120413
  Receipt Date: 20120405
  Transmission Date: 20120825
  Serious: Yes (Other)
  Sender: FDA-Public Use
  Company Number: US-JNJFOC-20120207496

PATIENT
  Sex: Female
  Weight: 71.67 kg

DRUGS (11)
  1. RISPERDAL [Suspect]
     Route: 065
     Dates: start: 19920101
  2. COREG [Concomitant]
     Indication: HYPERTENSION
     Route: 065
  3. ALTACE [Concomitant]
     Indication: HYPERTENSION
     Route: 065
  4. RISPERDAL [Suspect]
     Route: 065
  5. WELLBUTRIN [Concomitant]
     Indication: DEPRESSION
     Route: 065
  6. GEODON [Suspect]
     Route: 065
  7. ZOCOR [Concomitant]
     Indication: BLOOD CHOLESTEROL INCREASED
     Route: 065
  8. GEODON [Suspect]
     Indication: SCHIZOAFFECTIVE DISORDER
     Route: 065
     Dates: start: 20110101
  9. RISPERDAL [Suspect]
     Indication: PSYCHOTIC DISORDER
     Route: 065
     Dates: end: 20110101
  10. KLONOPIN [Concomitant]
     Indication: ANXIETY DISORDER
     Route: 065
  11. LEXAPRO [Concomitant]
     Indication: DEPRESSION
     Route: 065

REACTIONS (4)
  - DIABETES MELLITUS [None]
  - AMNESIA [None]
  - BODY HEIGHT DECREASED [None]
  - OBESITY [None]
